FAERS Safety Report 9158379 (Version 2)
Quarter: 2013Q3

REPORT INFORMATION
  Report Type: Spontaneous
  Country: FR (occurrence: FR)
  Receive Date: 20130312
  Receipt Date: 20130918
  Transmission Date: 20140515
  Serious: Yes (Hospitalization)
  Sender: FDA-Public Use
  Company Number: FR-BRISTOL-MYERS SQUIBB COMPANY-17452582

PATIENT
  Age: 56 Year
  Sex: Female

DRUGS (5)
  1. COUMADINE [Suspect]
     Indication: VENOUS THROMBOSIS
     Route: 048
     Dates: start: 201201, end: 20130207
  2. LASILIX [Suspect]
     Indication: OEDEMA PERIPHERAL
     Dosage: 1DF:20 MG/ 2 ML,SOLUTION FOR INJECTION IN AMPOULES (FUROSEMIDE) 20 MG
     Route: 048
     Dates: start: 201212, end: 20130205
  3. DEPAKINE CHRONO [Concomitant]
  4. TEGRETOL [Concomitant]
     Dosage: SR
  5. SEROPRAM [Concomitant]

REACTIONS (1)
  - Hypersensitivity vasculitis [Recovering/Resolving]
